FAERS Safety Report 6381822-7 (Version None)
Quarter: 2009Q3

REPORT INFORMATION
  Report Type: 
  Country: None (occurrence: None)
  Receive Date: 20090930
  Receipt Date: 20090924
  Transmission Date: 20100115
  Serious: Yes (Death, Hospitalization, Other)
  Sender: FDA-Public Use
  Company Number: IN-ELI_LILLY_AND_COMPANY-IN200909005463

PATIENT
  Sex: Male

DRUGS (3)
  1. XIGRIS [Suspect]
     Indication: SEPSIS
     Dosage: UNK, UNKNOWN
     Route: 065
     Dates: start: 20090920, end: 20090901
  2. XIGRIS [Suspect]
     Dosage: UNK, UNKNOWN
     Route: 065
     Dates: start: 20090901, end: 20090901
  3. XIGRIS [Suspect]
     Dosage: UNK, UNKNOWN
     Route: 065
     Dates: start: 20090901, end: 20090901

REACTIONS (3)
  - DISSEMINATED INTRAVASCULAR COAGULATION [None]
  - INTERNATIONAL NORMALISED RATIO INCREASED [None]
  - TRACHEAL HAEMORRHAGE [None]
